FAERS Safety Report 6341661-X (Version None)
Quarter: 2009Q3

REPORT INFORMATION
  Report Type: 
  Country: None (occurrence: None)
  Receive Date: 20090902
  Receipt Date: 20090902
  Transmission Date: 20100115
  Serious: Yes (Other)
  Sender: FDA-Public Use
  Company Number: None

PATIENT
  Sex: Female
  Weight: 58.9676 kg

DRUGS (1)
  1. COLESTIPOL HYDROCHLORIDE [Suspect]
     Indication: BLOOD CHOLESTEROL INCREASED
     Dosage: 2 TABS 4 TIMES DAY MOUTH
     Route: 048
     Dates: start: 20080811, end: 20090420

REACTIONS (2)
  - DENTAL CARIES [None]
  - TOOTH LOSS [None]
